FAERS Safety Report 14532086 (Version 4)
Quarter: 2019Q1

REPORT INFORMATION
  Report Type: Spontaneous
  Country: US (occurrence: US)
  Receive Date: 20180214
  Receipt Date: 20190103
  Transmission Date: 20190417
  Serious: Yes (Other)
  Sender: FDA-Public Use
  Company Number: US-DSJP-DSU-2017-149920

PATIENT

DRUGS (1)
  1. TRIBENZOR [Suspect]
     Active Substance: AMLODIPINE BESYLATE\HYDROCHLOROTHIAZIDE\OLMESARTAN MEDOXOMIL
     Indication: PRODUCT USED FOR UNKNOWN INDICATION
     Dosage: 20-5-12.5 MG, UNK
     Dates: start: 20110909

REACTIONS (5)
  - Diverticulitis [Unknown]
  - Gastrooesophageal reflux disease [Not Recovered/Not Resolved]
  - Constipation [Unknown]
  - Diverticulum [Recovering/Resolving]
  - Rectal haemorrhage [Not Recovered/Not Resolved]

NARRATIVE: CASE EVENT DATE: 20150628
